FAERS Safety Report 13052724 (Version 1)
Quarter: 2016Q4

REPORT INFORMATION
  Report Type: Spontaneous
  Country: US (occurrence: US)
  Receive Date: 20161221
  Receipt Date: 20161221
  Transmission Date: 20170207
  Serious: No
  Sender: FDA-Public Use
  Company Number: US-GE HEALTHCARE MEDICAL DIAGNOSTICS-OMPQ-PR-1611S-2006

PATIENT
  Age: 96 Year
  Sex: Female

DRUGS (2)
  1. OMNIPAQUE [Suspect]
     Active Substance: IOHEXOL
     Indication: INVESTIGATION
     Dosage: DOSE NOT REPORTED
     Route: 065
     Dates: start: 20161026, end: 20161026
  2. OMNIPAQUE [Suspect]
     Active Substance: IOHEXOL
     Indication: DIAGNOSTIC PROCEDURE

REACTIONS (9)
  - Blood pressure decreased [Unknown]
  - Dysuria [Unknown]
  - Chills [Unknown]
  - Dyspnoea [Unknown]
  - Abdominal distension [Unknown]
  - Muscular weakness [Unknown]
  - Nasal congestion [Unknown]
  - Heart rate increased [Unknown]
  - Hyporesponsive to stimuli [Unknown]

NARRATIVE: CASE EVENT DATE: 20161028
